FAERS Safety Report 19868637 (Version 1)
Quarter: 2021Q3

REPORT INFORMATION
  Report Type: Spontaneous
  Country: US (occurrence: US)
  Receive Date: 20210922
  Receipt Date: 20210922
  Transmission Date: 20211014
  Serious: Yes (Other)
  Sender: FDA-Public Use
  Company Number: US-009507513-2109USA004834

PATIENT
  Sex: Female

DRUGS (2)
  1. KEYTRUDA [Suspect]
     Active Substance: PEMBROLIZUMAB
     Dosage: UNK
  2. LENVATINIB MESYLATE [Suspect]
     Active Substance: LENVATINIB MESYLATE
     Indication: ENDOMETRIAL CANCER
     Dosage: 200 MILLIGRAM, DAILY
     Route: 048
     Dates: start: 20210707

REACTIONS (7)
  - Stomatitis [Unknown]
  - Ageusia [Unknown]
  - Weight decreased [Unknown]
  - Memory impairment [Unknown]
  - Malignant neoplasm progression [Unknown]
  - Product dose omission issue [Unknown]
  - Dysphonia [Unknown]
